FAERS Safety Report 6732137-6 (Version None)
Quarter: 2010Q2

REPORT INFORMATION
  Report Type: 
  Country: None (occurrence: None)
  Receive Date: 20100519
  Receipt Date: 20100511
  Transmission Date: 20101027
  Serious: Yes (Other)
  Sender: FDA-Public Use
  Company Number: US-ASTRAZENECA-2010SE15473

PATIENT
  Age: 44 Year
  Sex: Male
  Weight: 68.5 kg

DRUGS (6)
  1. CRESTOR [Suspect]
     Route: 048
  2. CRESTOR [Suspect]
     Route: 048
     Dates: start: 20090210
  3. CRESTOR [Suspect]
     Route: 048
     Dates: start: 20100201
  4. CRESTOR [Suspect]
     Route: 048
  5. PLAVIX [Concomitant]
  6. METOPROLOL 95 [Concomitant]

REACTIONS (1)
  - SLEEP DISORDER [None]
